FAERS Safety Report 4485251-2 (Version None)
Quarter: 2004Q3

REPORT INFORMATION
  Report Type: 
  Country: None (occurrence: None)
  Receive Date: 20040921
  Receipt Date: 20040526
  Transmission Date: 20050211
  Serious: Yes (Hospitalization)
  Sender: FDA-Public Use
  Company Number: 163-20785-04050594

PATIENT
  Age: 64 Year
  Sex: Male
  Weight: 96.5 kg

DRUGS (5)
  1. THALOMID [Suspect]
     Indication: NON-SMALL CELL LUNG CANCER
     Dosage: 200 MG, QD, ORAL; SEE IMAGE
     Route: 048
     Dates: start: 20040416, end: 20040422
  2. THALOMID [Suspect]
     Indication: NON-SMALL CELL LUNG CANCER
     Dosage: 200 MG, QD, ORAL; SEE IMAGE
     Route: 048
     Dates: start: 20040423, end: 20040430
  3. THALOMID [Suspect]
     Indication: NON-SMALL CELL LUNG CANCER
     Dosage: 200 MG, QD, ORAL; SEE IMAGE
     Route: 048
     Dates: start: 20040512
  4. CARBOPLATIN [Suspect]
     Indication: NON-SMALL CELL LUNG CANCER
     Dosage: 828 MG, EVERY 21 DAYS, INTRAVENOUS
     Route: 042
     Dates: start: 20040416, end: 20040416
  5. PACLITAXEL [Suspect]
     Indication: NON-SMALL CELL LUNG CANCER
     Dosage: 468 MG, EVERY 21 DAYS, INTRAVENOUS
     Route: 042
     Dates: start: 20040416, end: 20040416

REACTIONS (3)
  - HYPOXIA [None]
  - LUNG INFILTRATION [None]
  - PNEUMONITIS [None]
